FAERS Safety Report 20905289 (Version 1)
Quarter: 2022Q2

REPORT INFORMATION
  Report Type: Spontaneous
  Country: US (occurrence: US)
  Receive Date: 20220602
  Receipt Date: 20220602
  Transmission Date: 20220721
  Serious: No
  Sender: FDA-Public Use
  Company Number: US-009507513-2205USA004550

PATIENT
  Age: 87 Year
  Sex: Female

DRUGS (3)
  1. BELSOMRA [Suspect]
     Active Substance: SUVOREXANT
     Indication: Insomnia
     Dosage: 1 TABLET BY MOUTH AT NIGHT
     Route: 048
     Dates: start: 20220502, end: 20220509
  2. BELSOMRA [Suspect]
     Active Substance: SUVOREXANT
     Indication: Insomnia
     Dosage: 1 TABLET BY MOUTH AT NIGHT
     Route: 048
     Dates: start: 20220509, end: 20220509
  3. CANDESARTAN [Concomitant]
     Active Substance: CANDESARTAN
     Indication: Hypertension
     Dosage: 16 MILLIGRAM, QAM (2 X 8 MILLIGRAM TABLETS IN THE AM)

REACTIONS (6)
  - Dyspnoea [Recovered/Resolved]
  - Swelling face [Recovered/Resolved]
  - Dysstasia [Recovered/Resolved]
  - Muscular weakness [Recovered/Resolved]
  - Wheezing [Recovered/Resolved]
  - Drug ineffective [Not Recovered/Not Resolved]

NARRATIVE: CASE EVENT DATE: 20220502
